FAERS Safety Report 13661835 (Version 1)
Quarter: 2017Q2

REPORT INFORMATION
  Report Type: Spontaneous
  Country: US (occurrence: US)
  Receive Date: 20170616
  Receipt Date: 20170616
  Transmission Date: 20170830
  Serious: No
  Sender: FDA-Public Use
  Company Number: US-BAYER-2017-104881

PATIENT
  Age: 84 Year
  Sex: Female
  Weight: 56.96 kg

DRUGS (3)
  1. MIRALAX [Suspect]
     Active Substance: POLYETHYLENE GLYCOL 3350
     Indication: GASTROINTESTINAL DISORDER
     Dosage: 1 DF, QOD
     Route: 048
  2. BAYER ASPIRIN [Concomitant]
     Active Substance: ASPIRIN
     Indication: ISCHAEMIC HEART DISEASE PROPHYLAXIS
  3. LISINOPRIL. [Concomitant]
     Active Substance: LISINOPRIL

REACTIONS (10)
  - Fatigue [Recovered/Resolved]
  - Product use issue [Unknown]
  - Abnormal behaviour [Unknown]
  - Circumstance or information capable of leading to medication error [Unknown]
  - Decreased appetite [Recovered/Resolved]
  - Product use issue [Recovered/Resolved]
  - Hunger [Recovered/Resolved]
  - Product use in unapproved indication [Unknown]
  - Diarrhoea [Recovered/Resolved]
  - Inappropriate prescribing [Unknown]

NARRATIVE: CASE EVENT DATE: 201705
